FAERS Safety Report 8965429 (Version 1)
Quarter: 2012Q4

REPORT INFORMATION
  Report Type: 
  Country: CN (occurrence: CN)
  Receive Date: 20121213
  Receipt Date: 20121213
  Transmission Date: 20130627
  Serious: Yes (Hospitalization, Other)
  Sender: FDA-Public Use
  Company Number: PHHY2012CN109148

PATIENT
  Age: 71 Year
  Sex: Female
  Weight: 51 kg

DRUGS (2)
  1. MIACALCIC [Suspect]
     Indication: OSTEOPOROSIS
     Dosage: 50 IU, qd
     Route: 042
     Dates: start: 20091221, end: 20100113
  2. MIACALCIC [Suspect]
     Indication: OSTEOPOROSIS

REACTIONS (5)
  - Dizziness [Recovered/Resolved]
  - Lacunar infarction [Unknown]
  - Depression [Unknown]
  - Anxiety [Unknown]
  - Nausea [Recovered/Resolved]
